FAERS Safety Report 4795008-0 (Version None)
Quarter: 2005Q4

REPORT INFORMATION
  Report Type: 
  Country: None (occurrence: None)
  Receive Date: 20051006
  Receipt Date: 20050926
  Transmission Date: 20060501
  Serious: Yes (Hospitalization)
  Sender: FDA-Public Use
  Company Number: 6017518F

PATIENT
  Age: 63 Year
  Sex: Male

DRUGS (2)
  1. NIASPAN [Suspect]
     Indication: HYPERLIPIDAEMIA
     Dates: end: 20050801
  2. ANTIHYPERTENSION MEDICATION [Concomitant]

REACTIONS (7)
  - CONTUSION [None]
  - FALL [None]
  - HYPERHIDROSIS [None]
  - HYPOTENSION [None]
  - LOSS OF CONSCIOUSNESS [None]
  - MUSCULOSKELETAL CHEST PAIN [None]
  - SYNCOPE [None]
